FAERS Safety Report 4283328-8 (Version None)
Quarter: 2004Q1

REPORT INFORMATION
  Report Type: 
  Country: None (occurrence: None)
  Receive Date: 20040122
  Receipt Date: 20040109
  Transmission Date: 20041129
  Serious: Yes (Other)
  Sender: FDA-Public Use
  Company Number: 601058

PATIENT
  Age: 12 Year
  Sex: Male
  Weight: 50.8029 kg

DRUGS (2)
  1. RECOMBINATE [Suspect]
     Indication: FACTOR VIII DEFICIENCY
     Dosage: 2300 IU; PRN; INTRAVENOUS
     Route: 042
     Dates: start: 20031122, end: 20040105
  2. AMICAR [Suspect]
     Indication: EPISTAXIS
     Dosage: 3 TAB; Q6H; ORAL
     Route: 048
     Dates: start: 20031122

REACTIONS (7)
  - ANGIOPATHY [None]
  - CONTUSION [None]
  - EPISTAXIS [None]
  - HAEMATOMA [None]
  - MUSCLE HAEMORRHAGE [None]
  - MUSCLE STRAIN [None]
  - NAUSEA [None]
